FAERS Safety Report 18586693 (Version 2)
Quarter: 2020Q4

REPORT INFORMATION
  Report Type: Spontaneous
  Country: US (occurrence: US)
  Receive Date: 20201207
  Receipt Date: 20201211
  Transmission Date: 20210114
  Serious: No
  Sender: FDA-Public Use
  Company Number: US-TEVA-2020-US-1856382

PATIENT
  Sex: Female

DRUGS (2)
  1. PIMECROLIMUS. [Suspect]
     Active Substance: PIMECROLIMUS
     Route: 065
     Dates: start: 20201201
  2. PIMECROLIMUS. [Suspect]
     Active Substance: PIMECROLIMUS
     Indication: PRURITUS
     Route: 065
     Dates: start: 20201130

REACTIONS (5)
  - Feeling abnormal [Not Recovered/Not Resolved]
  - Eye irritation [Recovering/Resolving]
  - Ocular hyperaemia [Recovering/Resolving]
  - Eye pruritus [Recovering/Resolving]
  - Drug hypersensitivity [Unknown]

NARRATIVE: CASE EVENT DATE: 20201130
